FAERS Safety Report 19582292 (Version 3)
Quarter: 2021Q4

REPORT INFORMATION
  Report Type: Spontaneous
  Country: JP (occurrence: JP)
  Receive Date: 20210719
  Receipt Date: 20211015
  Transmission Date: 20220303
  Serious: Yes (Hospitalization, Other)
  Sender: FDA-Public Use
  Company Number: JP-BRISTOL-MYERS SQUIBB COMPANY-BMS-2021-068971

PATIENT
  Age: 65 Year
  Sex: Male

DRUGS (9)
  1. YERVOY [Suspect]
     Active Substance: IPILIMUMAB
     Indication: Lung adenocarcinoma
     Dosage: UNK
     Route: 065
  2. YERVOY [Suspect]
     Active Substance: IPILIMUMAB
     Dosage: UNK
     Route: 065
  3. OPDIVO [Suspect]
     Active Substance: NIVOLUMAB
     Indication: Lung adenocarcinoma
     Dosage: UNK
     Route: 065
  4. OPDIVO [Suspect]
     Active Substance: NIVOLUMAB
     Dosage: UNK
     Route: 065
  5. CARBOPLATIN [Suspect]
     Active Substance: CARBOPLATIN
     Indication: Lung adenocarcinoma
     Dosage: UNK
     Route: 065
  6. PEMETREXED [Suspect]
     Active Substance: PEMETREXED
     Indication: Lung adenocarcinoma
     Dosage: UNK
     Route: 065
  7. OLMESARTAN [Concomitant]
     Active Substance: OLMESARTAN
     Indication: Product used for unknown indication
     Dosage: UNK
     Route: 048
  8. AMLODIPINE [Concomitant]
     Active Substance: AMLODIPINE BESYLATE
     Indication: Product used for unknown indication
     Dosage: UNK
     Route: 048
  9. FEBUXOSTAT [Concomitant]
     Active Substance: FEBUXOSTAT
     Indication: Product used for unknown indication
     Dosage: UNK
     Route: 048

REACTIONS (4)
  - Decreased appetite [Unknown]
  - Malaise [Unknown]
  - Pyrexia [Unknown]
  - Facial paralysis [Unknown]
